FAERS Safety Report 12933670 (Version 1)
Quarter: 2016Q4

REPORT INFORMATION
  Report Type: Spontaneous
  Country: FR (occurrence: FR)
  Receive Date: 20161111
  Receipt Date: 20161111
  Transmission Date: 20170207
  Serious: Yes (Hospitalization, Other)
  Sender: FDA-Public Use
  Company Number: FR-TELIGENT, INC-IGIL20160301

PATIENT
  Age: 85 Year
  Sex: Male

DRUGS (13)
  1. CHIBRO CADRON [Suspect]
     Active Substance: DEXAMETHASONE SODIUM PHOSPHATE\NEOMYCIN SULFATE
     Indication: PRODUCT USED FOR UNKNOWN INDICATION
     Route: 031
     Dates: start: 20150113
  2. SUFENTA [Concomitant]
     Active Substance: SUFENTANIL CITRATE
     Indication: PRODUCT USED FOR UNKNOWN INDICATION
     Route: 065
     Dates: start: 20150119, end: 20150119
  3. DIPRIVAN [Concomitant]
     Active Substance: PROPOFOL
     Indication: PRODUCT USED FOR UNKNOWN INDICATION
     Route: 065
     Dates: start: 20150119, end: 20150119
  4. EPHEDRINE. [Concomitant]
     Active Substance: EPHEDRINE
     Indication: PRODUCT USED FOR UNKNOWN INDICATION
     Route: 065
     Dates: start: 20150119, end: 20150119
  5. CEFTAZIDIME. [Suspect]
     Active Substance: CEFTAZIDIME
     Indication: PRODUCT USED FOR UNKNOWN INDICATION
     Route: 031
     Dates: start: 20150119, end: 20150121
  6. OFLOCET [Suspect]
     Active Substance: OFLOXACIN
     Indication: PRODUCT USED FOR UNKNOWN INDICATION
     Route: 031
     Dates: start: 20150120, end: 20150121
  7. CELESTENE [Suspect]
     Active Substance: BETAMETHASONE
     Indication: PRODUCT USED FOR UNKNOWN INDICATION
     Route: 057
     Dates: start: 20150119, end: 20150119
  8. DIAMOX SEQUELS [Suspect]
     Active Substance: ACETAZOLAMIDE
     Indication: PRODUCT USED FOR UNKNOWN INDICATION
     Route: 031
     Dates: start: 20150119, end: 20150119
  9. VANCOMYCIN [Suspect]
     Active Substance: VANCOMYCIN
     Indication: PRODUCT USED FOR UNKNOWN INDICATION
     Route: 031
     Dates: start: 20150119, end: 20150121
  10. YELLOX [Suspect]
     Active Substance: BROMFENAC SODIUM
     Indication: PRODUCT USED FOR UNKNOWN INDICATION
     Route: 031
     Dates: start: 20150113
  11. CEFUROXIME. [Concomitant]
     Active Substance: CEFUROXIME
     Indication: PRODUCT USED FOR UNKNOWN INDICATION
     Route: 065
     Dates: start: 20150119, end: 20150119
  12. PIPERACILLIN [Suspect]
     Active Substance: PIPERACILLIN
     Indication: PRODUCT USED FOR UNKNOWN INDICATION
     Route: 065
     Dates: start: 20150120, end: 20150121
  13. ACUPAN [Concomitant]
     Active Substance: NEFOPAM HYDROCHLORIDE
     Indication: PRODUCT USED FOR UNKNOWN INDICATION
     Route: 065
     Dates: start: 20150119, end: 20150119

REACTIONS (12)
  - Eosinophilia [Recovered/Resolved]
  - Blister [Recovered/Resolved]
  - Wound [Recovered/Resolved]
  - Erythema [Recovered/Resolved]
  - Toxic skin eruption [Recovered/Resolved]
  - Inflammation [Recovered/Resolved]
  - Skin erosion [Recovered/Resolved]
  - Skin exfoliation [None]
  - Herpes simplex [Recovered/Resolved]
  - Purpura [Recovered/Resolved]
  - Rash maculo-papular [Recovered/Resolved]
  - Hyperthermia [Recovered/Resolved]

NARRATIVE: CASE EVENT DATE: 20150121
